FAERS Safety Report 10961052 (Version 1)
Quarter: 2015Q1

REPORT INFORMATION
  Report Type: Spontaneous
  Country: US (occurrence: None)
  Receive Date: 20150326
  Receipt Date: 20150326
  Transmission Date: 20150721
  Serious: Yes (Other)
  Sender: FDA-Public Use
  Company Number: None

PATIENT
  Age: 52 Year
  Sex: Male
  Weight: 113.4 kg

DRUGS (14)
  1. METHADONE [Concomitant]
     Active Substance: METHADONE HYDROCHLORIDE
  2. HARVONI [Concomitant]
     Active Substance: LEDIPASVIR\SOFOSBUVIR
  3. IBUPROPHIN [Concomitant]
  4. HARVONI [Suspect]
     Active Substance: LEDIPASVIR\SOFOSBUVIR
     Indication: HEPATITIS C
     Dosage: 1 PILL
     Route: 048
  5. FENTENYL PATCH [Concomitant]
  6. AFRIN [Concomitant]
     Active Substance: OXYMETAZOLINE
  7. VITAMIN D [Concomitant]
     Active Substance: CHOLECALCIFEROL
  8. OMEPROSOL [Concomitant]
  9. LEVAMIRE [Concomitant]
  10. LISINIPLIL [Concomitant]
  11. METFORMIN [Concomitant]
     Active Substance: METFORMIN HYDROCHLORIDE
  12. GLIPIZIDE. [Concomitant]
     Active Substance: GLIPIZIDE
  13. HYDROCLOROTHORIZIDE [Concomitant]
  14. HUMALOG [Concomitant]
     Active Substance: INSULIN LISPRO

REACTIONS (10)
  - Headache [None]
  - Drug withdrawal syndrome [None]
  - Pyrexia [None]
  - Tremor [None]
  - Drug interaction [None]
  - Pain [None]
  - Diarrhoea [None]
  - Cold sweat [None]
  - Muscle spasms [None]
  - Insomnia [None]

NARRATIVE: CASE EVENT DATE: 20150216
